FAERS Safety Report 12649197 (Version 3)
Quarter: 2016Q4

REPORT INFORMATION
  Report Type: Spontaneous
  Country: US (occurrence: US)
  Receive Date: 20160812
  Receipt Date: 20161014
  Transmission Date: 20170207
  Serious: Yes (Other)
  Sender: FDA-Public Use
  Company Number: US-PFIZER INC-2016377599

PATIENT
  Age: 70 Year
  Sex: Female
  Weight: 97 kg

DRUGS (3)
  1. NEURONTIN [Suspect]
     Active Substance: GABAPENTIN
     Indication: PAIN
     Dosage: 10 MG, 2X/DAY
     Dates: end: 2013
  2. ISOSORB [Concomitant]
     Indication: CORONARY ARTERY DISEASE
     Dosage: UNK
     Dates: start: 1996
  3. LOVASTATIN. [Concomitant]
     Active Substance: LOVASTATIN
     Indication: BLOOD CHOLESTEROL ABNORMAL
     Dosage: 20 MG, 2X/DAY
     Route: 048
     Dates: start: 1996

REACTIONS (9)
  - Product use issue [Unknown]
  - Pain in jaw [Recovering/Resolving]
  - Lip and/or oral cavity cancer [Recovering/Resolving]
  - Body height decreased [Unknown]
  - Stomatitis [Recovering/Resolving]
  - Gastritis [Recovering/Resolving]
  - Scoliosis [Unknown]
  - Drug intolerance [Unknown]
  - Tongue disorder [Recovering/Resolving]

NARRATIVE: CASE EVENT DATE: 2012
